FAERS Safety Report 15425931 (Version 3)
Quarter: 2018Q4

REPORT INFORMATION
  Report Type: Spontaneous
  Country: HU (occurrence: HU)
  Receive Date: 20180925
  Receipt Date: 20181031
  Transmission Date: 20190204
  Serious: Yes (Hospitalization, Other)
  Sender: FDA-Public Use
  Company Number: HU-PFIZER INC-2018330227

PATIENT
  Age: 75 Year
  Sex: Female

DRUGS (18)
  1. LETROZOLE. [Suspect]
     Active Substance: LETROZOLE
     Indication: BREAST CANCER METASTATIC
     Dosage: UNK
  2. LERCATON [Concomitant]
     Dosage: 10 MG, UNK (1X1)
  3. CONTRAMAL [Concomitant]
     Active Substance: TRAMADOL HYDROCHLORIDE
     Dosage: 100 MG, UNK
  4. ATORVASTATIN [Concomitant]
     Active Substance: ATORVASTATIN
     Dosage: 20 MG, UNK
  5. CITALOPRAM [Concomitant]
     Active Substance: CITALOPRAM HYDROBROMIDE
     Dosage: 20 MG, UNK
  6. RILMENIDINE [Concomitant]
     Active Substance: RILMENIDINE
     Dosage: 1 MG, UNK (IN THE EVENING)
  7. VALSOCARD [Concomitant]
     Dosage: 160 MG, UNK
  8. SYNCUMAR [Concomitant]
     Active Substance: ACENOCOUMAROL
     Dosage: UNK
  9. KALIUM [POTASSIUM CHLORIDE] [Concomitant]
     Dosage: UNK
  10. CAVINTON [Concomitant]
     Active Substance: VINPOCETINE
     Dosage: UNK (1X1)
  11. BISOPROLOL [Concomitant]
     Active Substance: BISOPROLOL
     Dosage: 5 MG, UNK (2X1)
  12. RILMENIDINE TEVA [Concomitant]
     Dosage: 1 MG, UNK (3X1)
  13. COVEREX [Concomitant]
     Active Substance: PERINDOPRIL ERBUMINE
     Dosage: UNK
  14. IBRANCE [Suspect]
     Active Substance: PALBOCICLIB
     Indication: BREAST CANCER METASTATIC
     Dosage: 125 MG, 1X/DAY, IN 3/1 DOSAGE SCHEMA
     Route: 048
     Dates: start: 20171201, end: 20180806
  15. SPIRON [SPIRONOLACTONE] [Concomitant]
     Dosage: 100 MG, UNK
  16. LAPIDEN [Concomitant]
     Active Substance: INDAPAMIDE
     Dosage: 1.5 MG, UNK (3X1)
  17. VITAMIN D3 [Concomitant]
     Active Substance: CHOLECALCIFEROL
     Dosage: UNK
  18. LENDORMIN [Concomitant]
     Active Substance: BROTIZOLAM
     Dosage: 0.25 MG, UNK (IN THE EVENING)

REACTIONS (11)
  - Disorientation [Recovered/Resolved]
  - Chest pain [Unknown]
  - Sepsis [Recovered/Resolved]
  - Memory impairment [Unknown]
  - Somnolence [Unknown]
  - Parkinson^s disease [Unknown]
  - Mixed anxiety and depressive disorder [Unknown]
  - Meningitis bacterial [Recovering/Resolving]
  - Pneumonia [Recovered/Resolved]
  - Cystitis [Unknown]
  - Hyponatraemia [Unknown]

NARRATIVE: CASE EVENT DATE: 20180805
